FAERS Safety Report 6756748-7 (Version None)
Quarter: 2010Q2

REPORT INFORMATION
  Report Type: 
  Country: None (occurrence: None)
  Receive Date: 20100604
  Receipt Date: 20100524
  Transmission Date: 20101027
  Serious: Yes (Other)
  Sender: FDA-Public Use
  Company Number: US-JNJCH-2010011274

PATIENT
  Age: 60 Year
  Sex: Male
  Weight: 99.8 kg

DRUGS (1)
  1. VISINE EYE DROPS [Suspect]
     Indication: EYE IRRITATION
     Dosage: TEXT:4 DROPS ONCE
     Route: 047

REACTIONS (4)
  - APPLICATION SITE PAIN [None]
  - HALO VISION [None]
  - RHINALGIA [None]
  - RHINORRHOEA [None]
